FAERS Safety Report 13556704 (Version 2)
Quarter: 2018Q3

REPORT INFORMATION
  Report Type: Spontaneous
  Country: US (occurrence: US)
  Receive Date: 20170517
  Receipt Date: 20180710
  Transmission Date: 20181010
  Serious: No
  Sender: FDA-Public Use
  Company Number: US-SA-2017SA059834

PATIENT
  Sex: Male

DRUGS (2)
  1. BYETTA [Concomitant]
     Active Substance: EXENATIDE
  2. TOUJEO [Suspect]
     Active Substance: INSULIN GLARGINE
     Indication: DIABETES MELLITUS
     Dosage: UNK UNK,QD
     Route: 065

REACTIONS (3)
  - Injection site reaction [Unknown]
  - Device issue [Unknown]
  - Memory impairment [Unknown]
